FAERS Safety Report 6693798-3 (Version None)
Quarter: 2010Q2

REPORT INFORMATION
  Report Type: 
  Country: None (occurrence: None)
  Receive Date: 20100423
  Receipt Date: 20100413
  Transmission Date: 20101027
  Serious: Yes (Other)
  Sender: FDA-Public Use
  Company Number: US-PFIZER INC-2010047333

PATIENT
  Sex: Female

DRUGS (2)
  1. GEODON [Suspect]
     Dosage: UNK
  2. ABILIFY [Interacting]
     Dosage: UNK

REACTIONS (4)
  - BACK PAIN [None]
  - DRUG INTERACTION [None]
  - MUSCLE SPASMS [None]
  - MYOCARDIAL INFARCTION [None]
